FAERS Safety Report 24039559 (Version 1)
Quarter: 2024Q3

REPORT INFORMATION
  Report Type: Spontaneous
  Country: ES (occurrence: ES)
  Receive Date: 20240702
  Receipt Date: 20240702
  Transmission Date: 20241017
  Serious: Yes (Other)
  Sender: ASTELLAS
  Company Number: ES-ASTELLAS-2024US018069

PATIENT
  Age: 65 Year
  Sex: Male

DRUGS (3)
  1. SOLIFENACIN\TAMSULOSIN [Suspect]
     Active Substance: SOLIFENACIN\TAMSULOSIN
     Indication: Product used for unknown indication
     Dosage: 6MG/0.4MG, ONCE DAILY (IN THE MORNING)
     Route: 065
     Dates: start: 2020
  2. MIRABEGRON [Suspect]
     Active Substance: MIRABEGRON
     Indication: Urinary incontinence
     Dosage: 50 MG, ONCE DAILY (IN THE MORNING AS WELL)
     Route: 065
     Dates: start: 2024
  3. SIMVASTATIN [Concomitant]
     Active Substance: SIMVASTATIN
     Indication: Product used for unknown indication
     Dosage: UNK UNK, UNKNOWN FREQ.
     Route: 065

REACTIONS (2)
  - Ejaculation failure [Not Recovered/Not Resolved]
  - Urinary incontinence [Unknown]
